FAERS Safety Report 23060777 (Version 1)
Quarter: 2023Q4

REPORT INFORMATION
  Report Type: Spontaneous
  Country: US (occurrence: US)
  Receive Date: 20231012
  Receipt Date: 20231012
  Transmission Date: 20240110
  Serious: No
  Sender: FDA-Public Use
  Company Number: US-INCYTE CORPORATION-2023IN010370

PATIENT

DRUGS (2)
  1. JAKAFI [Suspect]
     Active Substance: RUXOLITINIB
     Indication: Myelofibrosis
     Dosage: 15 MILLIGRAM (TAKE TABLET (15 MG) BY MOUTH TWICE DAILY 4 DAYS PER WEEK AND 1 TABLET(15 MG) ONCE DAIL
     Route: 048
     Dates: start: 202007
  2. JAKAFI [Suspect]
     Active Substance: RUXOLITINIB
     Dosage: 20 MILLIGRAM, QD EVERY EVENING
     Route: 048
     Dates: start: 202007

REACTIONS (2)
  - Milk allergy [Unknown]
  - Food allergy [Unknown]
